FAERS Safety Report 9442096 (Version 1)
Quarter: 2013Q3

REPORT INFORMATION
  Report Type: Spontaneous
  Country: US (occurrence: US)
  Receive Date: 20130806
  Receipt Date: 20130806
  Transmission Date: 20140515
  Serious: Yes (Other)
  Sender: FDA-Public Use
  Company Number: US-BAYER-2013-094055

PATIENT
  Age: 36 Year
  Sex: Female
  Weight: 113.4 kg

DRUGS (1)
  1. YAZ [Suspect]
     Indication: CONTRACEPTION

REACTIONS (2)
  - Deep vein thrombosis [Recovered/Resolved]
  - Cholelithiasis [None]
